FAERS Safety Report 25167685 (Version 2)
Quarter: 2025Q2

REPORT INFORMATION
  Report Type: Spontaneous
  Country: IN (occurrence: IN)
  Receive Date: 20250407
  Receipt Date: 20250423
  Transmission Date: 20250716
  Serious: No
  Sender: PFIZER
  Company Number: IN-PFIZER INC-PV202400053021

PATIENT
  Age: 54 Year
  Sex: Female

DRUGS (15)
  1. LORLATINIB [Suspect]
     Active Substance: LORLATINIB
     Indication: Non-small cell lung cancer stage IV
     Route: 048
     Dates: start: 20240329
  2. LORLATINIB [Suspect]
     Active Substance: LORLATINIB
     Dosage: 100 MG, 1X/DAY
     Route: 048
     Dates: start: 20240404
  3. LORLATINIB [Suspect]
     Active Substance: LORLATINIB
     Dosage: 100 MG, ALTERNATE DAY, ONCE
     Route: 048
     Dates: start: 20240404
  4. LORLATINIB [Suspect]
     Active Substance: LORLATINIB
     Route: 048
     Dates: start: 20240405
  5. LORLATINIB [Suspect]
     Active Substance: LORLATINIB
     Dosage: 100 MG, 1X/DAY (4 MONTH)
     Route: 048
     Dates: start: 202407
  6. LORLATINIB [Suspect]
     Active Substance: LORLATINIB
     Dosage: 100 MG, DAILY
     Route: 048
  7. LORLATINIB [Suspect]
     Active Substance: LORLATINIB
     Dosage: 100 MG EVERY ALTERNATE DAY
     Route: 048
     Dates: start: 202501
  8. EXAFIB [Concomitant]
  9. FOLIC ACID [Concomitant]
     Active Substance: FOLIC ACID
  10. LACOSAMIDE [Concomitant]
     Active Substance: LACOSAMIDE
  11. LEVETIRACETAM [Concomitant]
     Active Substance: LEVETIRACETAM
  12. ROSUVASTATIN [Concomitant]
     Active Substance: ROSUVASTATIN
  13. ATORVASTATIN CALCIUM [Concomitant]
     Active Substance: ATORVASTATIN CALCIUM
  14. TRIPHALA [Concomitant]
  15. TORSEMIDE [Concomitant]
     Active Substance: TORSEMIDE

REACTIONS (67)
  - Joint swelling [Unknown]
  - Flatulence [Not Recovered/Not Resolved]
  - Abdominal distension [Unknown]
  - Hyperchlorhydria [Not Recovered/Not Resolved]
  - Pain [Unknown]
  - Swelling face [Not Recovered/Not Resolved]
  - Ageusia [Unknown]
  - Thinking abnormal [Unknown]
  - Alopecia [Unknown]
  - Platelet count increased [Unknown]
  - Joint range of motion decreased [Unknown]
  - Nervousness [Not Recovered/Not Resolved]
  - Procedural pain [Recovered/Resolved]
  - Gastritis [Recovering/Resolving]
  - Urinary incontinence [Not Recovered/Not Resolved]
  - Head discomfort [Not Recovered/Not Resolved]
  - Hepatic enzyme abnormal [Not Recovered/Not Resolved]
  - Dysuria [Not Recovered/Not Resolved]
  - Dyslipidaemia [Unknown]
  - Joint stiffness [Recovering/Resolving]
  - Feeling hot [Not Recovered/Not Resolved]
  - Musculoskeletal stiffness [Recovering/Resolving]
  - Ear pain [Recovering/Resolving]
  - Protein total decreased [Not Recovered/Not Resolved]
  - Hypersensitivity [Recovering/Resolving]
  - Gait inability [Not Recovered/Not Resolved]
  - Pruritus [Not Recovered/Not Resolved]
  - Dizziness [Recovered/Resolved]
  - Pain in extremity [Not Recovered/Not Resolved]
  - Chest pain [Unknown]
  - Sleep disorder [Unknown]
  - Vomiting [Recovered/Resolved]
  - Pyrexia [Not Recovered/Not Resolved]
  - Nausea [Unknown]
  - Headache [Unknown]
  - Swelling [Not Recovered/Not Resolved]
  - Blood cholesterol increased [Not Recovered/Not Resolved]
  - Stress [Unknown]
  - Fatigue [Recovered/Resolved]
  - Memory impairment [Not Recovered/Not Resolved]
  - Gait disturbance [Recovering/Resolving]
  - Disturbance in attention [Unknown]
  - Hypoaesthesia [Unknown]
  - Paraesthesia [Recovered/Resolved]
  - Burning sensation [Not Recovered/Not Resolved]
  - Arthralgia [Not Recovered/Not Resolved]
  - Irritability [Unknown]
  - Anxiety [Not Recovered/Not Resolved]
  - Peripheral swelling [Not Recovered/Not Resolved]
  - Confusional state [Unknown]
  - Renal function test abnormal [Not Recovered/Not Resolved]
  - Blood glucose increased [Not Recovered/Not Resolved]
  - Glycosylated haemoglobin increased [Not Recovered/Not Resolved]
  - Lipids increased [Not Recovered/Not Resolved]
  - Asthenia [Recovered/Resolved]
  - Constipation [Not Recovered/Not Resolved]
  - Hypersomnia [Not Recovered/Not Resolved]
  - Feeling cold [Not Recovered/Not Resolved]
  - Decreased appetite [Recovered/Resolved]
  - Taste disorder [Recovered/Resolved]
  - Gastrointestinal disorder [Recovering/Resolving]
  - Weight decreased [Recovered/Resolved]
  - Back pain [Recovering/Resolving]
  - Cough [Recovered/Resolved]
  - Haemoglobin decreased [Not Recovered/Not Resolved]
  - Anger [Not Recovered/Not Resolved]
  - Off label use [Unknown]

NARRATIVE: CASE EVENT DATE: 20240701
